FAERS Safety Report 5138181-7 (Version None)
Quarter: 2006Q4

REPORT INFORMATION
  Report Type: 
  Country: None (occurrence: None)
  Receive Date: 20061026
  Receipt Date: 20061026
  Transmission Date: 20070319
  Serious: Yes (Hospitalization)
  Sender: FDA-Public Use
  Company Number: None

PATIENT
  Sex: Female
  Weight: 88.45 kg

DRUGS (2)
  1. FLUOROURACIL [Suspect]
     Dosage: 4400 MG
  2. LEUCOVORIN CALCIUM [Suspect]
     Dosage: 200 MG

REACTIONS (31)
  - ANASTOMOTIC COMPLICATION [None]
  - ANASTOMOTIC LEAK [None]
  - ANGIOPATHY [None]
  - ASPIRATION [None]
  - ATELECTASIS [None]
  - BLOOD GLUCOSE INCREASED [None]
  - DEEP VEIN THROMBOSIS [None]
  - DIARRHOEA [None]
  - DYSPNOEA [None]
  - HYPOTENSION [None]
  - ILEUS [None]
  - INFLAMMATION [None]
  - KLEBSIELLA SEPSIS [None]
  - LACTIC ACIDOSIS [None]
  - LUNG INFILTRATION [None]
  - METABOLIC ACIDOSIS [None]
  - METASTASES TO ADRENALS [None]
  - NECROSIS [None]
  - NEUTROPENIA [None]
  - OEDEMA [None]
  - OESOPHAGEAL FISTULA [None]
  - ORAL FUNGAL INFECTION [None]
  - PERITONITIS [None]
  - RENAL FAILURE [None]
  - SMALL INTESTINAL PERFORATION [None]
  - STOMATITIS [None]
  - SUPRAVENTRICULAR TACHYCARDIA [None]
  - ULCER [None]
  - UPPER GASTROINTESTINAL HAEMORRHAGE [None]
  - VOMITING [None]
  - WEIGHT DECREASED [None]
